FAERS Safety Report 21308237 (Version 1)
Quarter: 2022Q3

REPORT INFORMATION
  Report Type: Spontaneous
  Country: US (occurrence: None)
  Receive Date: 20220907
  Receipt Date: 20220907
  Transmission Date: 20221027
  Serious: Yes (Other)
  Sender: FDA-Public Use
  Company Number: None

PATIENT
  Age: 53 Year
  Sex: Female
  Weight: 82.35 kg

DRUGS (1)
  1. PERMETHRIN [Suspect]
     Active Substance: PERMETHRIN
     Indication: Hypersensitivity
     Dosage: OTHER QUANTITY : 60 TUBE OF CREAM;?OTHER FREQUENCY : ONE TIME APPLICATI;?
     Dates: start: 20220904

REACTIONS (3)
  - Incorrect dose administered [None]
  - Condition aggravated [None]
  - Product label confusion [None]

NARRATIVE: CASE EVENT DATE: 20220904
